FAERS Safety Report 5876291-7 (Version None)
Quarter: 2008Q3

REPORT INFORMATION
  Report Type: 
  Country: None (occurrence: None)
  Receive Date: 20080909
  Receipt Date: 20080909
  Transmission Date: 20090109
  Serious: No
  Sender: FDA-Public Use
  Company Number: None

PATIENT
  Sex: Female
  Weight: 70.3075 kg

DRUGS (1)
  1. LEVAQUIN [Suspect]
     Indication: ASTHMA

REACTIONS (10)
  - BLOOD CHOLESTEROL INCREASED [None]
  - CARDIOVASCULAR DISORDER [None]
  - DIARRHOEA [None]
  - FIBROMYALGIA [None]
  - JOINT SWELLING [None]
  - MALAISE [None]
  - SWELLING [None]
  - TENDON DISORDER [None]
  - THINKING ABNORMAL [None]
  - VASCULAR RUPTURE [None]
